FAERS Safety Report 7580632-2 (Version None)
Quarter: 2011Q2

REPORT INFORMATION
  Report Type: 
  Country: None (occurrence: None)
  Receive Date: 20110629
  Receipt Date: 20110623
  Transmission Date: 20111010
  Serious: Yes (Hospitalization, Other)
  Sender: FDA-Public Use
  Company Number: IT-ROXANE LABORATORIES, INC.-2011-RO-00887RO

PATIENT
  Age: 44 Year
  Sex: Female

DRUGS (5)
  1. PREDNISONE [Suspect]
     Indication: CROHN'S DISEASE
  2. INFLIXIMAB [Suspect]
     Indication: CROHN'S DISEASE
  3. METHOTREXATE [Suspect]
     Indication: CROHN'S DISEASE
     Route: 048
     Dates: start: 20030401, end: 20050701
  4. AZATHIOPRINE [Suspect]
     Indication: CROHN'S DISEASE
  5. PREDNISONE [Suspect]
     Dates: end: 19991101

REACTIONS (3)
  - PNEUMONITIS [None]
  - PANCREATITIS ACUTE [None]
  - CROHN'S DISEASE [None]
